FAERS Safety Report 17679933 (Version 9)
Quarter: 2021Q1

REPORT INFORMATION
  Report Type: Spontaneous
  Country: IT (occurrence: IT)
  Receive Date: 20200417
  Receipt Date: 20210304
  Transmission Date: 20210419
  Serious: Yes (Death, Other)
  Sender: FDA-Public Use
  Company Number: IT-009507513-0810ITA00019

PATIENT
  Age: 21 Year
  Sex: Male

DRUGS (7)
  1. CASPOFUNGIN ACETATE. [Suspect]
     Active Substance: CASPOFUNGIN ACETATE
     Indication: ASPERGILLUS INFECTION
     Dosage: 70 MG, QD
  2. CASPOFUNGIN ACETATE. [Suspect]
     Active Substance: CASPOFUNGIN ACETATE
     Dosage: 70 MG, QD
  3. VORICONAZOLE. [Concomitant]
     Active Substance: VORICONAZOLE
     Dosage: UNK, QD
  4. VORICONAZOLE. [Concomitant]
     Active Substance: VORICONAZOLE
     Indication: ASPERGILLUS INFECTION
     Dosage: 12 MG/KG, QD
  5. AMPHOTERICIN B. [Concomitant]
     Active Substance: AMPHOTERICIN B
     Indication: ASPERGILLUS INFECTION
     Dosage: 3 MG/KG/DAY TO A CUMULATIVE DOSE OF 5G
  6. VORICONAZOLE. [Concomitant]
     Active Substance: VORICONAZOLE
     Dosage: 8 MG/KG, QD
  7. AMPHOTERICIN B. [Concomitant]
     Active Substance: AMPHOTERICIN B
     Dosage: 5 MG/KG/DAY, CUMULATIVE DOSE 4.75 G

REACTIONS (6)
  - Aspergillus infection [Unknown]
  - Paraplegia [Not Recovered/Not Resolved]
  - Proteinuria [Unknown]
  - Hypokalaemia [Unknown]
  - Drug ineffective [Unknown]
  - Acute respiratory failure [Fatal]
